FAERS Safety Report 9493845 (Version 2)
Quarter: 2013Q3

REPORT INFORMATION
  Report Type: Report from Study
  Country: BE (occurrence: BE)
  Receive Date: 20130902
  Receipt Date: 20130902
  Transmission Date: 20140515
  Serious: Yes (Hospitalization)
  Sender: FDA-Public Use
  Company Number: BE-ROCHE-1244000

PATIENT
  Age: 82 Year
  Sex: Female
  Weight: 60 kg

DRUGS (8)
  1. BEVACIZUMAB [Suspect]
     Indication: COLON CANCER
     Route: 042
     Dates: start: 20130405
  2. LEVOFOLINIC ACID [Suspect]
     Indication: COLON CANCER
     Route: 042
     Dates: start: 20130405
  3. 5-FLUOROURACIL [Suspect]
     Indication: COLON CANCER
     Route: 042
     Dates: start: 20130405
  4. METFORMAX [Concomitant]
     Indication: DIABETES MELLITUS
     Route: 048
     Dates: start: 2008
  5. ATENOLOL [Concomitant]
     Indication: HYPERTENSION
     Route: 048
     Dates: start: 2008
  6. ASAFLOW [Concomitant]
     Route: 048
     Dates: start: 2008
  7. COVERSYL [Concomitant]
     Indication: HYPERTENSION
     Route: 048
     Dates: end: 2012
  8. ZANIDIP (BELGIUM) [Concomitant]
     Indication: HYPERTENSION
     Route: 048
     Dates: start: 2012

REACTIONS (6)
  - Dyspnoea [Recovered/Resolved]
  - Palpitations [Recovered/Resolved]
  - Atrial fibrillation [Unknown]
  - Epistaxis [Not Recovered/Not Resolved]
  - Rash [Recovered/Resolved]
  - Constipation [Unknown]
